FAERS Safety Report 16428284 (Version 2)
Quarter: 2021Q1

REPORT INFORMATION
  Report Type: Report from Study
  Country: US (occurrence: US)
  Receive Date: 20190613
  Receipt Date: 20210330
  Transmission Date: 20210419
  Serious: Yes (Hospitalization, Other)
  Sender: FDA-Public Use
  Company Number: US-BRISTOL-MYERS SQUIBB COMPANY-BMS-2019-054884

PATIENT
  Age: 65 Year
  Sex: Female

DRUGS (1)
  1. NIVOLUMAB [Suspect]
     Active Substance: NIVOLUMAB
     Indication: LUNG SQUAMOUS CELL CARCINOMA STAGE IV
     Dosage: 240 MILLIGRAM
     Route: 065

REACTIONS (5)
  - Hypotension [Unknown]
  - Nervous system disorder [Unknown]
  - Myocarditis [Unknown]
  - Autonomic nervous system imbalance [Unknown]
  - Cardiac failure acute [Unknown]
